FAERS Safety Report 19031325 (Version 1)
Quarter: 2021Q1

REPORT INFORMATION
  Report Type: Spontaneous
  Country: US (occurrence: US)
  Receive Date: 20210319
  Receipt Date: 20210319
  Transmission Date: 20210420
  Serious: Yes (Hospitalization, Other)
  Sender: FDA-Public Use
  Company Number: US-009507513-2103USA003956

PATIENT
  Age: 43 Year
  Sex: Female

DRUGS (18)
  1. METHYLPREDNISOLONE. [Suspect]
     Active Substance: METHYLPREDNISOLONE
     Indication: PRODUCT USED FOR UNKNOWN INDICATION
     Route: 065
  2. CEFTAROLINE FOSAMIL ACETATE [Suspect]
     Active Substance: CEFTAROLINE FOSAMIL
     Indication: PRODUCT USED FOR UNKNOWN INDICATION
     Route: 065
  3. VICODIN [Suspect]
     Active Substance: ACETAMINOPHEN\HYDROCODONE BITARTRATE
     Indication: PAIN
     Route: 048
  4. ZESTRIL [Suspect]
     Active Substance: LISINOPRIL
     Indication: STAPHYLOCOCCAL INFECTION
  5. VICODIN [Suspect]
     Active Substance: ACETAMINOPHEN\HYDROCODONE BITARTRATE
     Indication: STAPHYLOCOCCAL INFECTION
  6. NORVASC [Suspect]
     Active Substance: AMLODIPINE BESYLATE
     Indication: PAIN
  7. CUBICIN [Suspect]
     Active Substance: DAPTOMYCIN
     Indication: PRODUCT USED FOR UNKNOWN INDICATION
     Route: 065
  8. NORVASC [Suspect]
     Active Substance: AMLODIPINE BESYLATE
     Indication: STAPHYLOCOCCAL INFECTION
     Route: 065
  9. ZESTRIL [Suspect]
     Active Substance: LISINOPRIL
     Indication: PAIN
     Route: 065
  10. VANCOCIN [Suspect]
     Active Substance: VANCOMYCIN HYDROCHLORIDE
     Indication: STAPHYLOCOCCAL INFECTION
     Route: 065
  11. CEFTRIAXONE. [Suspect]
     Active Substance: CEFTRIAXONE
     Indication: PRODUCT USED FOR UNKNOWN INDICATION
     Route: 065
  12. KETOROLAC TROMETHAMINE. [Suspect]
     Active Substance: KETOROLAC TROMETHAMINE
     Indication: PRODUCT USED FOR UNKNOWN INDICATION
     Route: 065
  13. PRINIVIL [Suspect]
     Active Substance: LISINOPRIL
     Indication: PAIN
  14. VANCOCIN [Suspect]
     Active Substance: VANCOMYCIN HYDROCHLORIDE
     Indication: PAIN
  15. DOXYCYCLINE HYCLATE. [Suspect]
     Active Substance: DOXYCYCLINE HYCLATE
     Indication: PRODUCT USED FOR UNKNOWN INDICATION
     Route: 065
  16. PRINIVIL [Suspect]
     Active Substance: LISINOPRIL
     Indication: STAPHYLOCOCCAL INFECTION
     Route: 048
  17. HYDRODIURIL [Suspect]
     Active Substance: HYDROCHLOROTHIAZIDE
     Indication: STAPHYLOCOCCAL INFECTION
     Route: 065
  18. HYDRODIURIL [Suspect]
     Active Substance: HYDROCHLOROTHIAZIDE
     Indication: PAIN

REACTIONS (12)
  - Osteomyelitis [Unknown]
  - Atrophy [Unknown]
  - Product use in unapproved indication [Unknown]
  - Back pain [Unknown]
  - Inflammatory marker increased [Unknown]
  - Blood creatinine increased [Unknown]
  - Fibrosis [Unknown]
  - Arteriosclerosis [Unknown]
  - Tubulointerstitial nephritis [Unknown]
  - Intervertebral discitis [Unknown]
  - Asymptomatic bacteriuria [Unknown]
  - Osteonecrosis [Unknown]
